FAERS Safety Report 7528503-1 (Version None)
Quarter: 2011Q2

REPORT INFORMATION
  Report Type: 
  Country: None (occurrence: None)
  Receive Date: 20110517
  Receipt Date: 20110506
  Transmission Date: 20111010
  Serious: Yes (Other)
  Sender: FDA-Public Use
  Company Number: WWISSUE-604

PATIENT
  Sex: Female

DRUGS (1)
  1. DOXYCYCLINE HYCLATE [Suspect]
     Dosage: 100MG, ORAL
     Route: 048
     Dates: start: 20110503, end: 20110506

REACTIONS (4)
  - NAUSEA [None]
  - VOMITING [None]
  - DIZZINESS [None]
  - VISION BLURRED [None]
